FAERS Safety Report 4761467-2 (Version None)
Quarter: 2005Q3

REPORT INFORMATION
  Report Type: 
  Country: None (occurrence: None)
  Receive Date: 20050830
  Receipt Date: 20050616
  Transmission Date: 20060218
  Serious: Yes (Other)
  Sender: FDA-Public Use
  Company Number: US_0503113786

PATIENT
  Age: 26 Year
  Sex: Female
  Weight: 66 kg

DRUGS (9)
  1. ZYPREXA [Suspect]
     Indication: BIPOLAR I DISORDER
     Dosage: 15 MG
     Dates: start: 20040422
  2. SYMBYAX [Suspect]
     Dates: start: 20040421, end: 20040615
  3. PROZAC [Suspect]
     Dosage: 40 MG/1 DAY
     Dates: end: 20040520
  4. DEPAKOTE [Concomitant]
  5. REMERON (MIRTAZAPINE ORIFARM) [Concomitant]
  6. DOXEPIN HCL [Concomitant]
  7. LEXAPOR (ESCITALOPRAM OXALATE) [Concomitant]
  8. TRAZODONE HCL [Concomitant]
  9. BENADRYL [Concomitant]

REACTIONS (5)
  - CONVULSION [None]
  - DRUG INEFFECTIVE [None]
  - HYPOGLYCAEMIA [None]
  - PANCREATITIS [None]
  - WEIGHT INCREASED [None]
